FAERS Safety Report 5989919-8 (Version None)
Quarter: 2008Q4

REPORT INFORMATION
  Report Type: 
  Country: None (occurrence: None)
  Receive Date: 20081210
  Receipt Date: 20081125
  Transmission Date: 20090506
  Serious: Yes (Other)
  Sender: FDA-Public Use
  Company Number: 100#03#2008-05897

PATIENT
  Age: 8 Month

DRUGS (2)
  1. SERTRALINE [Suspect]
     Indication: DRUG EXPOSURE DURING PREGNANCY
     Dosage: 100 MG REDUCED TO 50 MG
     Dates: start: 20080501
  2. FLUOXETINE [Suspect]
     Indication: DRUG EXPOSURE DURING PREGNANCY

REACTIONS (2)
  - DRUG EXPOSURE VIA BREAST MILK [None]
  - TREMOR [None]
